FAERS Safety Report 20030451 (Version 1)
Quarter: 2021Q4

REPORT INFORMATION
  Report Type: Spontaneous
  Country: US (occurrence: US)
  Receive Date: 20211103
  Receipt Date: 20211103
  Transmission Date: 20220303
  Serious: Yes (Hospitalization)
  Sender: FDA-Public Use
  Company Number: US-GW PHARMA-202110USGW05004

PATIENT

DRUGS (3)
  1. EPIDIOLEX [Suspect]
     Active Substance: CANNABIDIOL
     Indication: Idiopathic generalised epilepsy
     Dosage: 590 MILLIGRAM, BID
     Dates: start: 202108
  2. EPIDIOLEX [Suspect]
     Active Substance: CANNABIDIOL
     Indication: Epilepsy
  3. KITABIS PAK [Concomitant]
     Active Substance: TOBRAMYCIN
     Indication: Tracheitis
     Dosage: 1 AMPULE, BID, VIA NEBULIZER 28 DAYS ON THEN 28 DAYS OFF
     Route: 065

REACTIONS (3)
  - Secretion discharge [Unknown]
  - Tracheostomy malfunction [Unknown]
  - Product use in unapproved indication [Unknown]

NARRATIVE: CASE EVENT DATE: 20210101
